FAERS Safety Report 12876060 (Version 1)
Quarter: 2016Q4

REPORT INFORMATION
  Report Type: Spontaneous
  Country: US (occurrence: US)
  Receive Date: 20161024
  Receipt Date: 20161024
  Transmission Date: 20170207
  Serious: No
  Sender: FDA-Public Use
  Company Number: US-JAZZ-2016-US-015204

PATIENT
  Sex: Male

DRUGS (21)
  1. XYREM [Suspect]
     Active Substance: SODIUM OXYBATE
     Dosage: 4.5 G, BID
     Route: 048
     Dates: start: 201408, end: 2014
  2. ATENOLOL. [Concomitant]
     Active Substance: ATENOLOL
  3. NAPROSYN [Concomitant]
     Active Substance: NAPROXEN
  4. TUMS [Concomitant]
     Active Substance: CALCIUM CARBONATE
  5. LOSARTAN POTASSIUM. [Concomitant]
     Active Substance: LOSARTAN POTASSIUM
  6. XYREM [Suspect]
     Active Substance: SODIUM OXYBATE
     Dosage: 4.5 G, BID
     Route: 048
     Dates: start: 200505, end: 2009
  7. BENADRYL ALLERGY [Concomitant]
     Active Substance: DIPHENHYDRAMINE HYDROCHLORIDE
  8. HYDRALAZINE [Concomitant]
     Active Substance: HYDRALAZINE HYDROCHLORIDE
  9. MELATONIN [Concomitant]
     Active Substance: MELATONIN
  10. NIFEDIPINE. [Concomitant]
     Active Substance: NIFEDIPINE
  11. XYREM [Suspect]
     Active Substance: SODIUM OXYBATE
     Indication: INSOMNIA
     Dosage: 5 G, BID
     Route: 048
     Dates: start: 200408, end: 2004
  12. ZOLPIDEM TARTRATE. [Concomitant]
     Active Substance: ZOLPIDEM TARTRATE
  13. XYREM [Suspect]
     Active Substance: SODIUM OXYBATE
     Dosage: 4.5 G, BID
     Route: 048
     Dates: start: 201502
  14. KLONOPIN [Concomitant]
     Active Substance: CLONAZEPAM
  15. ALEVE [Concomitant]
     Active Substance: NAPROXEN SODIUM
  16. XYREM [Suspect]
     Active Substance: SODIUM OXYBATE
     Dosage: 5 G, BID
     Route: 048
     Dates: start: 200503, end: 2005
  17. TIZANIDINE HCL [Concomitant]
     Active Substance: TIZANIDINE HYDROCHLORIDE
  18. IBUPROFEN. [Concomitant]
     Active Substance: IBUPROFEN
  19. XYREM [Suspect]
     Active Substance: SODIUM OXYBATE
     Dosage: 4.5 G, BID
     Route: 048
     Dates: start: 200501, end: 2005
  20. METHYLPHENIDATE. [Concomitant]
     Active Substance: METHYLPHENIDATE
  21. IMODIUM A-D [Concomitant]
     Active Substance: LOPERAMIDE HYDROCHLORIDE

REACTIONS (2)
  - Nervous system disorder [Unknown]
  - Depression [Unknown]
